FAERS Safety Report 6878231-0 (Version None)
Quarter: 2010Q3

REPORT INFORMATION
  Report Type: 
  Country: None (occurrence: None)
  Receive Date: 20100728
  Receipt Date: 20100719
  Transmission Date: 20110219
  Serious: Yes (Hospitalization)
  Sender: FDA-Public Use
  Company Number: FR-PFIZER INC-2010089522

PATIENT
  Age: 75 Year
  Sex: Male

DRUGS (11)
  1. CLINDAMYCIN HCL [Suspect]
     Indication: OSTEOMYELITIS
     Dosage: 2.4 G/DAY
     Route: 048
     Dates: start: 20100527, end: 20100627
  2. BACTRIM DS [Suspect]
     Indication: OSTEOMYELITIS
     Dosage: 1 DF, 3X/DAY
     Route: 048
     Dates: start: 20100527, end: 20100627
  3. TAHOR [Concomitant]
     Dosage: UNK
  4. LEXOMIL [Concomitant]
     Dosage: UNK
  5. AMLOR [Concomitant]
     Dosage: UNK
  6. ZYLORIC ^FAES^ [Concomitant]
     Dosage: UNK
  7. KARDEGIC [Concomitant]
     Dosage: UNK
  8. FORLAX [Concomitant]
     Dosage: UNK
  9. XYZAL [Concomitant]
     Dosage: UNK
  10. LERCAN [Concomitant]
     Dosage: UNK
  11. NEBIVOLOL (TEMERIT) [Concomitant]
     Dosage: UNK

REACTIONS (1)
  - PURPURA NON-THROMBOCYTOPENIC [None]
